FAERS Safety Report 6012601-8 (Version None)
Quarter: 2008Q4

REPORT INFORMATION
  Report Type: 
  Country: None (occurrence: None)
  Receive Date: 20081218
  Receipt Date: 20081210
  Transmission Date: 20090506
  Serious: Yes (Hospitalization)
  Sender: FDA-Public Use
  Company Number: VE-ABBOTT-08P-178-0492529-00

PATIENT
  Sex: Female

DRUGS (2)
  1. HUMIRA [Suspect]
     Indication: RHEUMATOID ARTHRITIS
     Dosage: ONE PRE-FILLED SYRINGE
     Route: 030
     Dates: start: 20080901, end: 20081001
  2. METHOTREXATE [Concomitant]
     Indication: RHEUMATOID ARTHRITIS
     Route: 048
     Dates: start: 20081118, end: 20081123

REACTIONS (6)
  - CELLULITIS [None]
  - DIARRHOEA [None]
  - DISCOMFORT [None]
  - LIVER DISORDER [None]
  - PANCYTOPENIA [None]
  - PYREXIA [None]
